FAERS Safety Report 13108258 (Version 3)
Quarter: 2018Q2

REPORT INFORMATION
  Report Type: Report from Study
  Country: DE (occurrence: DE)
  Receive Date: 20170112
  Receipt Date: 20180628
  Transmission Date: 20180711
  Serious: Yes (Other)
  Sender: FDA-Public Use
  Company Number: DE-ROCHE-1878750

PATIENT
  Age: 45 Year
  Sex: Female

DRUGS (3)
  1. PREDNISOLON [Concomitant]
     Active Substance: PREDNISOLONE
  2. RITUXIMAB. [Suspect]
     Active Substance: RITUXIMAB
     Indication: RHEUMATOID ARTHRITIS
     Dosage: LAST DOSE PRIOR TO SAE: 12/MAY/2016
     Route: 065
     Dates: end: 201605
  3. METHOTREXAT [Concomitant]
     Active Substance: METHOTREXATE
     Indication: RHEUMATOID ARTHRITIS
     Route: 065

REACTIONS (3)
  - Migraine [Unknown]
  - Progressive multifocal leukoencephalopathy [Unknown]
  - Panic attack [Recovered/Resolved]

NARRATIVE: CASE EVENT DATE: 20160623
